FAERS Safety Report 8999176 (Version 1)
Quarter: 2013Q1

REPORT INFORMATION
  Report Type: Spontaneous
  Country: US (occurrence: US)
  Receive Date: 20130103
  Receipt Date: 20130103
  Transmission Date: 20140127
  Serious: No
  Sender: FDA-Public Use
  Company Number: US-JNJFOC-20121207642

PATIENT
  Sex: 0

DRUGS (1)
  1. PALIPERIDONE PALMITATE [Suspect]
     Indication: SCHIZOPHRENIA
     Route: 030

REACTIONS (7)
  - Weight increased [Unknown]
  - Agitation [Unknown]
  - Somnolence [Unknown]
  - Dizziness [Unknown]
  - Dry mouth [Unknown]
  - Drug administered at inappropriate site [Unknown]
  - Injection site pain [Unknown]
